FAERS Safety Report 16007346 (Version 2)
Quarter: 2019Q1

REPORT INFORMATION
  Report Type: Spontaneous
  Country: US (occurrence: US)
  Receive Date: 20190226
  Receipt Date: 20190301
  Transmission Date: 20190418
  Serious: Yes (Hospitalization)
  Sender: FDA-Public Use
  Company Number: US-JNJFOC-20190236094

PATIENT
  Age: 81 Year
  Sex: Male

DRUGS (17)
  1. VALSARTAN. [Concomitant]
     Active Substance: VALSARTAN
  2. VITAMIN B12 [Concomitant]
     Active Substance: CYANOCOBALAMIN
  3. FISH OIL [Concomitant]
     Active Substance: FISH OIL
  4. FINASTERIDE. [Concomitant]
     Active Substance: FINASTERIDE
  5. IMBRUVICA [Suspect]
     Active Substance: IBRUTINIB
     Indication: CHRONIC LYMPHOCYTIC LEUKAEMIA RECURRENT
     Dosage: 420 MG, QD
     Route: 048
     Dates: start: 20170520
  6. GABAPENTIN. [Concomitant]
     Active Substance: GABAPENTIN
  7. DICYCLOMINE [Concomitant]
     Active Substance: DICYCLOMINE HYDROCHLORIDE
  8. PANTOPRAZOLE [Concomitant]
     Active Substance: PANTOPRAZOLE
  9. MIRALAX [Concomitant]
     Active Substance: POLYETHYLENE GLYCOL 3350
  10. MONTELUKAST [Concomitant]
     Active Substance: MONTELUKAST SODIUM
  11. IMBRUVICA [Suspect]
     Active Substance: IBRUTINIB
     Indication: PRODUCT USED FOR UNKNOWN INDICATION
     Route: 048
  12. TAMSULOSIN [Concomitant]
     Active Substance: TAMSULOSIN
  13. PROLIA [Concomitant]
     Active Substance: DENOSUMAB
  14. METFORMIN [Concomitant]
     Active Substance: METFORMIN HYDROCHLORIDE
  15. COLACE [Concomitant]
     Active Substance: DOCUSATE SODIUM
  16. CALCIUM+D3 [Concomitant]
  17. AGGRENOX [Concomitant]
     Active Substance: ASPIRIN\DIPYRIDAMOLE

REACTIONS (2)
  - Adverse event [Unknown]
  - Influenza [Unknown]

NARRATIVE: CASE EVENT DATE: 20190108
